FAERS Safety Report 5226805-5 (Version None)
Quarter: 2007Q1

REPORT INFORMATION
  Report Type: 
  Country: None (occurrence: None)
  Receive Date: 20070130
  Receipt Date: 20070116
  Transmission Date: 20070707
  Serious: Yes (Other)
  Sender: FDA-Public Use
  Company Number: DISGB-07-0063

PATIENT
  Age: 54 Year
  Sex: Male

DRUGS (46)
  1. PROPOFOL [Suspect]
     Dosage: INTRAVENOUS
     Route: 042
  2. ACETAMINOPHEN [Suspect]
  3. OMEPRAZOLE [Suspect]
     Dosage: 40 MG, INTRAVENOUS
     Route: 042
  4. ACTRAPID (INSULIN HUMAN) [Suspect]
     Dosage: INTRAVENOUS
     Route: 042
  5. ALFENTANIL [Suspect]
  6. AMOXICILLIN [Suspect]
     Dosage: 3 GM (1 GM, TID), INTRAVENOUS
     Route: 042
  7. AQUASEPT (TRICLOSAN) [Suspect]
  8. BACTROBAN [Suspect]
  9. CALCIUM CHLORIDE (CALCIUM CHLORIDE HEXAHYDRATE) [Suspect]
  10. CEFTRIAXONE [Suspect]
     Dosage: 2 GM, INTRAVENOUS
     Route: 042
  11. CALCIUM GLUCONATE [Suspect]
     Dosage: 10 M1, INTRAVENOUS
     Route: 042
  12. ENOXAPARIN SODIUM [Suspect]
     Dosage: 20 MG (20 MG, QD), SUBCUTANEOUS
     Route: 058
  13. DOBUTAMINE (DOBUTAMINE) [Suspect]
  14. FLUCONAZOLE [Suspect]
     Dosage: 200 MG, (200 MG, QD), INTRAVENOUS
     Route: 042
  15. FRAGMIN [Suspect]
     Dosage: 250 IU (250 IU, OD)
  16. FUROSEMIDE [Suspect]
     Dosage: 40 MG (20 MG, BID), INTRAVENOUS
     Route: 042
  17. HYDROCORTISONE [Suspect]
     Dosage: 100 MG TOTAL
  18. LACTULOSE [Suspect]
     Dosage: 10 MI
  19. LANSOPRAZOLE [Suspect]
     Dosage: 30 MG
  20. LORAZEPAM [Suspect]
     Dosage: 30 MG
  21. MAGNESIUM SULPHATE (MAGNSEIUM SULFATE) [Suspect]
  22. NORADRENALINE (NORADRENALINE) [Suspect]
  23. CHLORPHENIRAMINE MALEATE [Suspect]
     Dosage: 40 MG (10 MG, QID), INTRAVENOUS
     Route: 042
  24. POTASSIUM CHLORIDE [Suspect]
  25. POTASSIUM PHOSPHATES [Suspect]
  26. SALBUTAMOL (SALBUTAMOL) [Suspect]
     Dosage: (PRN)
  27. POTASSIUM CHLORIDE [Suspect]
     Dosage: TOTAL 6DF DAILY (TID)
  28. SILVER SULPHADIAZINE (SULFADIAZINE SILVER) [Suspect]
     Dosage: TOPICAL
     Route: 061
  29. SIMVASTATIN [Suspect]
     Dosage: 40 MG (40 MG, QD)
  30. SODIUM BICARBONATE IN PLASTIC CONTAINER [Suspect]
     Dosage: 100 MG/HR, INTRAVENOUS
     Route: 042
  31. SODIUM CHLORIDE 0.9% [Suspect]
     Dosage: 0.9 %, INTRAVENOUS
     Route: 042
  32. THIAMIN (THIAMIN HYDROCHLORIDE) [Suspect]
     Dosage: 100 MG (QD), ORAL
     Route: 048
  33. PHYTONADIONE [Suspect]
  34. TINZAPARIN (HEPARIN-FRACTION, SODIUM SALT) [Suspect]
  35. AMOXICILLIN [Concomitant]
  36. ASPIRIN [Concomitant]
  37. ATORVENT (IPRATROPIUM BROMIDE) [Concomitant]
  38. CIPROFLOXACIN [Concomitant]
  39. CO-AMOXICLAV (CLAVULIN) [Concomitant]
  40. ERYTHROMYCIN [Concomitant]
  41. METOCLOPRAMIDE [Concomitant]
  42. MIDODRINE HYDROCHLORIDE [Concomitant]
  43. PANTOPRAZOLE SODIUM [Concomitant]
  44. TAZOCIN (PIP/TAZO) [Concomitant]
  45. VANCOMYCIN [Concomitant]
  46. ZOPICLONE (ZOPICLONE) [Concomitant]

REACTIONS (1)
  - TOXIC EPIDERMAL NECROLYSIS [None]
